FAERS Safety Report 7168330-0 (Version None)
Quarter: 2010Q4

REPORT INFORMATION
  Report Type: 
  Country: None (occurrence: None)
  Receive Date: 20101216
  Receipt Date: 20101207
  Transmission Date: 20110411
  Serious: Yes (Hospitalization, Other)
  Sender: FDA-Public Use
  Company Number: US-ABBOTT-10P-163-0690478-00

PATIENT
  Sex: Male
  Weight: 71.278 kg

DRUGS (7)
  1. HUMIRA [Suspect]
     Indication: CROHN'S DISEASE
     Dates: start: 20100901, end: 20101101
  2. SYNTHROID [Suspect]
     Indication: HYPOTHYROIDISM
     Dates: start: 20100901
  3. METOPROLOL [Concomitant]
     Indication: CARDIAC DISORDER
  4. PENTASA [Concomitant]
     Indication: CROHN'S DISEASE
     Dates: start: 20101201
  5. TYLENOL (CAPLET) [Concomitant]
     Indication: PRODUCT USED FOR UNKNOWN INDICATION
  6. UNKNOWN MEDICATION [Concomitant]
     Indication: SINUS DISORDER
  7. TRAZODONE [Concomitant]
     Indication: PRODUCT USED FOR UNKNOWN INDICATION

REACTIONS (8)
  - ARRHYTHMIA [None]
  - ASTHENIA [None]
  - DYSPNOEA [None]
  - FLUID RETENTION [None]
  - HYPOTHYROIDISM [None]
  - OEDEMA PERIPHERAL [None]
  - PNEUMONIA [None]
  - SWELLING [None]
